FAERS Safety Report 9282598 (Version 2)
Quarter: 2013Q2

REPORT INFORMATION
  Report Type: Spontaneous
  Country: US (occurrence: None)
  Receive Date: 20101208
  Receipt Date: 20130419
  Transmission Date: 20140414
  Serious: Yes (Life-Threatening, Hospitalization)
  Sender: FDA-Public Use
  Company Number: 54973 RSAE112310EF001

PATIENT
  Age: 5 Month
  Sex: Female
  Weight: 6.8 kg

DRUGS (1)
  1. HYLAND^S TEETHING TABLETS [Suspect]
     Indication: TEETHING
     Dosage: 2  TABS  2-3  HRS  X  3  DAYS

REACTIONS (5)
  - Incorrect dose administered [None]
  - Cyanosis [None]
  - Skin discolouration [None]
  - Rash [None]
  - Oxygen saturation decreased [None]
